FAERS Safety Report 7824607-4 (Version None)
Quarter: 2011Q4

REPORT INFORMATION
  Report Type: 
  Country: None (occurrence: None)
  Receive Date: 20111019
  Receipt Date: 20111006
  Transmission Date: 20120403
  Serious: Yes (Other)
  Sender: FDA-Public Use
  Company Number: GB-BAYER-2011-096456

PATIENT
  Age: 50 Year
  Sex: Female

DRUGS (3)
  1. IBUPROFEN [Concomitant]
  2. NAPROXEN SODIUM [Suspect]
     Indication: HEADACHE
     Dosage: 500 MG, UNK
     Dates: start: 20110922
  3. ACETAMINOPHEN [Concomitant]

REACTIONS (6)
  - SWOLLEN TONGUE [None]
  - SWELLING FACE [None]
  - DYSARTHRIA [None]
  - URTICARIA [None]
  - HYPERSENSITIVITY [None]
  - LIP SWELLING [None]
